FAERS Safety Report 7157264-3 (Version None)
Quarter: 2010Q4

REPORT INFORMATION
  Report Type: 
  Country: None (occurrence: None)
  Receive Date: 20101214
  Receipt Date: 20101206
  Transmission Date: 20110411
  Serious: Yes (Death)
  Sender: FDA-Public Use
  Company Number: GB-JNJFOC-20100800050

PATIENT
  Age: 63 Year
  Sex: Female
  Weight: 120 kg

DRUGS (18)
  1. TRAMADOL HYDROCHLORIDE [Suspect]
     Indication: BACK PAIN
     Route: 048
  2. TRAMADOL HYDROCHLORIDE [Suspect]
     Route: 048
  3. CIPRAMIL [Suspect]
     Indication: DEPRESSION
     Route: 048
  4. CIPRAMIL [Suspect]
     Route: 048
  5. CIPRAMIL [Suspect]
     Route: 048
  6. ASPIRIN [Concomitant]
     Indication: DIABETES MELLITUS
  7. ATORVASTATIN [Concomitant]
     Indication: DIABETES MELLITUS
  8. CHLORPROMAZINE [Concomitant]
     Indication: SCHIZOPHRENIA
  9. FUROSEMIDE [Concomitant]
     Indication: OEDEMA PERIPHERAL
  10. METFORMIN [Concomitant]
     Indication: DIABETES MELLITUS
  11. PIOGLITAZONE [Concomitant]
     Indication: DIABETES MELLITUS
  12. VITAMIN B COMPLEX [Concomitant]
     Indication: ALCOHOL PROBLEM
     Route: 048
  13. CODEINE [Concomitant]
  14. IBUPROFEN [Concomitant]
  15. LACTULOSE [Concomitant]
  16. ORLISTAT [Concomitant]
  17. TERBINAFINE HCL [Concomitant]
  18. PARACETAMOL [Concomitant]

REACTIONS (2)
  - DEATH [None]
  - MULTIPLE DRUG OVERDOSE [None]
